FAERS Safety Report 19071094 (Version 1)
Quarter: 2021Q1

REPORT INFORMATION
  Report Type: Spontaneous
  Country: US (occurrence: US)
  Receive Date: 20210330
  Receipt Date: 20210330
  Transmission Date: 20210420
  Serious: No
  Sender: FDA-Public Use
  Company Number: US-BAUSCH-BL-2021-009667

PATIENT
  Sex: Male

DRUGS (1)
  1. PRIMIDONE. [Suspect]
     Active Substance: PRIMIDONE
     Indication: EPILEPSY
     Dosage: MORE THAN 20 YEARS AGO IN 2000
     Route: 065
     Dates: start: 2000

REACTIONS (2)
  - Pain in extremity [Unknown]
  - Muscle tightness [Unknown]
